FAERS Safety Report 10194897 (Version 1)
Quarter: 2014Q2

REPORT INFORMATION
  Report Type: Spontaneous
  Country: US (occurrence: US)
  Receive Date: 20140526
  Receipt Date: 20140526
  Transmission Date: 20141212
  Serious: No
  Sender: FDA-Public Use
  Company Number: US-PFIZER INC-2014139967

PATIENT
  Sex: Female

DRUGS (1)
  1. LYRICA [Suspect]
     Dosage: UNK, SINGLE (ONCE)
     Route: 048

REACTIONS (4)
  - Malaise [Unknown]
  - Mobility decreased [Unknown]
  - Headache [Unknown]
  - Nausea [Unknown]
